FAERS Safety Report 13339500 (Version 3)
Quarter: 2017Q3

REPORT INFORMATION
  Report Type: Report from Study
  Country: PL (occurrence: PL)
  Receive Date: 20170315
  Receipt Date: 20170802
  Transmission Date: 20171127
  Serious: Yes (Hospitalization)
  Sender: FDA-Public Use
  Company Number: PL-EXELIXIS-XL18417008497

PATIENT
  Age: 45 Year
  Sex: Male
  Weight: 64 kg

DRUGS (11)
  1. BLINDED XL184 [Suspect]
     Active Substance: CABOZANTINIB
     Dosage: UNK MG, QD
     Route: 048
     Dates: start: 20161117
  2. KALIUM [Concomitant]
     Active Substance: POTASSIUM CHLORIDE
  3. HEPATIL [Concomitant]
  4. EUTHYROX [Concomitant]
     Active Substance: LEVOTHYROXINE SODIUM
  5. BLINDED XL184 [Suspect]
     Active Substance: CABOZANTINIB
     Indication: MEDULLARY THYROID CANCER
     Dosage: UNK MG, QD
     Route: 048
     Dates: start: 20160419
  6. BLINDED XL184 [Suspect]
     Active Substance: CABOZANTINIB
     Dosage: UNK MG, QD
     Route: 048
     Dates: start: 20161117
  7. CALPEROS [Concomitant]
     Active Substance: CALCIUM CARBONATE
  8. BLINDED XL184 [Suspect]
     Active Substance: CABOZANTINIB
     Indication: MEDULLARY THYROID CANCER
     Dosage: UNK MG, QD
     Route: 048
     Dates: start: 20160419
  9. HUMULIN NOS [Concomitant]
     Active Substance: INSULIN HUMAN
  10. VITAMIN B6 [Concomitant]
     Active Substance: PYRIDOXINE HYDROCHLORIDE
  11. PRESTARIUM [Concomitant]
     Active Substance: PERINDOPRIL

REACTIONS (1)
  - Electrolyte imbalance [Recovered/Resolved]

NARRATIVE: CASE EVENT DATE: 20161102
